FAERS Safety Report 6365619-X (Version None)
Quarter: 2009Q3

REPORT INFORMATION
  Report Type: 
  Country: None (occurrence: None)
  Receive Date: 20090919
  Receipt Date: 20090818
  Transmission Date: 20100115
  Serious: No
  Sender: FDA-Public Use
  Company Number: US-ABBOTT-09P-163-0593083-00

PATIENT
  Sex: Female
  Weight: 59.02 kg

DRUGS (3)
  1. HUMIRA [Suspect]
     Indication: RHEUMATOID ARTHRITIS
     Route: 058
     Dates: start: 20060701, end: 20080101
  2. HUMIRA [Suspect]
     Route: 058
     Dates: start: 20080501, end: 20080801
  3. HUMIRA [Suspect]
     Route: 058
     Dates: start: 20090101, end: 20090701

REACTIONS (6)
  - BRONCHITIS [None]
  - BURNS THIRD DEGREE [None]
  - DRUG DOSE OMISSION [None]
  - LUNG DISORDER [None]
  - LYMPHADENITIS [None]
  - LYMPHADENOPATHY [None]
